FAERS Safety Report 8370054-9 (Version None)
Quarter: 2012Q2

REPORT INFORMATION
  Report Type: 
  Country: None (occurrence: None)
  Receive Date: 20120518
  Receipt Date: 20120515
  Transmission Date: 20120825
  Serious: Yes (Other)
  Sender: FDA-Public Use
  Company Number: PHHY2012CO042376

PATIENT
  Sex: Female

DRUGS (5)
  1. ZOLEDRONOC ACID [Suspect]
     Indication: OSTEOPOROSIS
     Dosage: 5 MG, YEARLY
     Dates: start: 20110426
  2. HYDROXYCHLOROQUINE SULFATE [Concomitant]
  3. ZOLEDRONOC ACID [Suspect]
     Dosage: 5 MG, YEARLY
     Dates: start: 20120426
  4. SERTRALINE HYDROCHLORIDE [Concomitant]
  5. CALCIUM [Concomitant]

REACTIONS (4)
  - BRONCHITIS [None]
  - DISCOMFORT [None]
  - INFLUENZA LIKE ILLNESS [None]
  - CHILLS [None]
